FAERS Safety Report 10232742 (Version 1)
Quarter: 2014Q2

REPORT INFORMATION
  Report Type: Spontaneous
  Country: US (occurrence: None)
  Receive Date: 20140611
  Receipt Date: 20140611
  Transmission Date: 20141212
  Serious: Yes (Disabling, Other)
  Sender: FDA-Public Use
  Company Number: None

PATIENT
  Age: 40 Year
  Sex: Male
  Weight: 61.24 kg

DRUGS (2)
  1. CIPRO [Suspect]
     Indication: URINARY TRACT INFECTION
     Dosage: 10 PILLS?TWICE DAILY ?TAKEN BY MOUTH
     Route: 048
     Dates: start: 20130118, end: 20130121
  2. CIPRO [Suspect]
     Indication: CYSTITIS
     Dosage: 10 PILLS?TWICE DAILY ?TAKEN BY MOUTH
     Route: 048
     Dates: start: 20130118, end: 20130121

REACTIONS (11)
  - Arthralgia [None]
  - Convulsion [None]
  - Insomnia [None]
  - Visual acuity reduced [None]
  - Hyperhidrosis [None]
  - Nightmare [None]
  - Muscular weakness [None]
  - Vision blurred [None]
  - Vitreous floaters [None]
  - Eye pain [None]
  - Ocular hyperaemia [None]
